FAERS Safety Report 6660709-6 (Version None)
Quarter: 2010Q1

REPORT INFORMATION
  Report Type: 
  Country: None (occurrence: None)
  Receive Date: 20100326
  Receipt Date: 20100316
  Transmission Date: 20100710
  Serious: Yes (Death)
  Sender: FDA-Public Use
  Company Number: B0642121A

PATIENT
  Age: 40 Year
  Sex: Male

DRUGS (9)
  1. BUSULPHAN (FORMULATION UNKNOWN) (GENERIC) (BUSULFAN) [Suspect]
     Indication: BONE MARROW TRANSPLANT
     Dosage: 16 MG/KG
  2. CYCLOPHOSPHAMIDE [Suspect]
     Indication: BONE MARROW TRANSPLANT
     Dosage: 150 MG/KG
  3. CYCLOSPORINE [Suspect]
     Indication: PROPHYLAXIS AGAINST GRAFT VERSUS HOST DISEASE
     Dosage: 3 MG/KG
  4. METHOTREXATE [Suspect]
     Indication: PROPHYLAXIS AGAINST GRAFT VERSUS HOST DISEASE
     Dosage: 15 MG/M2
  5. IMMUNOSUPPRESSIVE (FORMULATION UNKNOWN) (IMMUNOSUPPRESSIVE) [Suspect]
     Indication: PROPHYLAXIS AGAINST GRAFT VERSUS HOST DISEASE
  6. STEROID [Concomitant]
  7. TACROLIMUS [Concomitant]
  8. ANTIBIOTICS [Concomitant]
  9. .. [Concomitant]

REACTIONS (5)
  - ELECTROLYTE IMBALANCE [None]
  - HYPERCALCAEMIA [None]
  - LUNG NEOPLASM MALIGNANT [None]
  - METASTASES TO PLEURA [None]
  - PLEURAL EFFUSION [None]
